FAERS Safety Report 7816476-3 (Version None)
Quarter: 2011Q4

REPORT INFORMATION
  Report Type: 
  Country: None (occurrence: None)
  Receive Date: 20111017
  Receipt Date: 20111007
  Transmission Date: 20120403
  Serious: Yes (Other)
  Sender: FDA-Public Use
  Company Number: US-JNJFOC-20100110989

PATIENT
  Sex: Female
  Weight: 66.68 kg

DRUGS (41)
  1. DURAGESIC-100 [Suspect]
     Indication: PAIN
     Route: 062
     Dates: start: 20110801
  2. KLONOPIN [Concomitant]
     Indication: ILL-DEFINED DISORDER
     Dosage: 1 TABLET(S) BY MOUTH TID
     Route: 048
  3. LUNESTA [Concomitant]
     Indication: INSOMNIA
     Dosage: QHS
     Route: 048
  4. DURAGESIC-100 [Suspect]
     Route: 062
     Dates: start: 20090901
  5. WELLBUTRIN XL [Concomitant]
     Indication: ILL-DEFINED DISORDER
     Route: 048
  6. PROMETHAZINE HCL [Concomitant]
     Indication: NAUSEA
     Dosage: 1 TABLET Q 4-6 HOURS PRN
     Route: 048
  7. ROBAXIN [Concomitant]
     Indication: MUSCLE SPASMS
     Dosage: Q 4-6 HOUR PRN
     Route: 048
  8. MOBIC [Concomitant]
     Indication: ILL-DEFINED DISORDER
     Dosage: 1 TABLET BY MOUTH BID
     Route: 048
  9. CLARITIN-D 24 HOUR [Concomitant]
     Indication: ILL-DEFINED DISORDER
     Route: 048
  10. HYDROCHLOROTHIAZIDE [Concomitant]
     Indication: DIURETIC THERAPY
     Route: 065
  11. FLEXERIL [Concomitant]
     Indication: ILL-DEFINED DISORDER
     Dosage: TID
     Route: 048
  12. OXYCONTIN [Concomitant]
     Indication: ILL-DEFINED DISORDER
     Route: 048
  13. ESTRADIOL, NORETHINDRONE ACETATE [Concomitant]
     Indication: ILL-DEFINED DISORDER
     Dosage: 1 MG/0.5 MG
     Route: 065
  14. XANAX [Concomitant]
     Indication: ILL-DEFINED DISORDER
     Dosage: 1 TABLET BY MOUTH TID
     Route: 048
  15. SIMVASTATIN [Concomitant]
     Indication: ILL-DEFINED DISORDER
     Route: 048
  16. DOXYCYCLINE [Concomitant]
     Indication: ILL-DEFINED DISORDER
     Route: 065
  17. SEROQUEL [Concomitant]
     Indication: ILL-DEFINED DISORDER
     Route: 048
  18. TRAZODONE HCL [Concomitant]
     Indication: ILL-DEFINED DISORDER
     Route: 065
  19. CYMBALTA [Concomitant]
     Indication: ILL-DEFINED DISORDER
     Route: 048
  20. NASACORT AQ [Concomitant]
     Indication: ILL-DEFINED DISORDER
     Dosage: 1 SPRAY(S) IN EACH NOSTRIL
     Route: 045
  21. LIDODERM [Concomitant]
     Indication: MUSCLE SPASMS
     Dosage: 1 QD LEAVE ON 12- 24 HOURS
     Route: 065
  22. AMBIEN [Concomitant]
     Indication: ILL-DEFINED DISORDER
     Route: 065
  23. NORCO [Concomitant]
     Indication: ILL-DEFINED DISORDER
     Dosage: 7.5MG/325 MG TABLET
     Route: 048
  24. NEURONTIN [Concomitant]
     Indication: ILL-DEFINED DISORDER
     Route: 048
  25. DURAGESIC-100 [Suspect]
     Indication: BACK PAIN
     Dosage: NDC NUMBER: 50458-036-05
     Route: 062
     Dates: start: 19960101, end: 20091101
  26. DURAGESIC-100 [Suspect]
     Dosage: NDC NUMBER: 50458-094-05
     Route: 062
  27. RESTORIL [Concomitant]
     Indication: SLEEP DISORDER
     Dosage: 1 HOUR OF SLEEP
     Route: 065
  28. TRIPLIX [Concomitant]
     Indication: ILL-DEFINED DISORDER
     Route: 048
  29. DIOVAN HCT [Concomitant]
     Indication: CARDIAC DISORDER
     Dosage: (60MG) 125 MG
     Route: 065
  30. TRICOR [Concomitant]
     Indication: ILL-DEFINED DISORDER
     Route: 065
  31. VALIUM [Concomitant]
     Indication: ILL-DEFINED DISORDER
     Route: 048
  32. PERCOCET [Concomitant]
     Indication: PAIN
     Dosage: 7.5 MG/325MG, 1 TABLET BY MOUTH
     Route: 048
  33. BACTRIM DS [Concomitant]
     Indication: ILL-DEFINED DISORDER
     Dosage: 160/180 MG
     Route: 065
  34. LIDODERM [Concomitant]
     Indication: ARTHRITIS
     Dosage: 1 QD LEAVE ON 12- 24 HOURS
     Route: 065
  35. NEXIUM [Concomitant]
     Indication: GASTROOESOPHAGEAL REFLUX DISEASE
     Route: 048
  36. LEXAPRO [Concomitant]
     Indication: ILL-DEFINED DISORDER
     Route: 048
  37. DIAZEPAM [Concomitant]
     Indication: ILL-DEFINED DISORDER
     Route: 048
  38. AMBIEN CR [Concomitant]
     Indication: INSOMNIA
     Route: 065
  39. SOMA [Concomitant]
     Indication: ILL-DEFINED DISORDER
     Dosage: BID TO QID
     Route: 048
  40. OXYCODONE HCL AND ACETAMINOPHEN [Concomitant]
     Indication: PAIN
     Dosage: 10MG/650MG TABLET, 1 TABLET BY MOUTH Q 6HOURS PRN
     Route: 048
  41. EFFEXOR XR [Concomitant]
     Indication: ILL-DEFINED DISORDER
     Route: 065

REACTIONS (10)
  - PRODUCT ADHESION ISSUE [None]
  - DRUG INEFFECTIVE [None]
  - DEPRESSION [None]
  - INADEQUATE ANALGESIA [None]
  - DRUG ADMINISTERED AT INAPPROPRIATE SITE [None]
  - INTERVERTEBRAL DISC DEGENERATION [None]
  - PRODUCT QUALITY ISSUE [None]
  - BREAKTHROUGH PAIN [None]
  - BACK PAIN [None]
  - PAIN [None]
